FAERS Safety Report 9129392 (Version 1)
Quarter: 2013Q1

REPORT INFORMATION
  Report Type: Report from Study
  Country: US (occurrence: US)
  Receive Date: 20130228
  Receipt Date: 20130228
  Transmission Date: 20140127
  Serious: Yes (Hospitalization)
  Sender: FDA-Public Use
  Company Number: US-GLAXOSMITHKLINE-A0807302A

PATIENT
  Age: 40 Year
  Sex: Female
  Weight: 105 kg

DRUGS (7)
  1. LAPATINIB [Suspect]
     Indication: BREAST CANCER
     Dosage: 750MG PER DAY
     Route: 048
     Dates: start: 20090602, end: 20090607
  2. PACLITAXEL [Suspect]
     Indication: BREAST CANCER
     Dosage: 80MGM2 WEEKLY
     Route: 042
     Dates: start: 20090602, end: 20090616
  3. TRASTUZUMAB [Suspect]
     Indication: BREAST CANCER
     Dosage: 2MGK VARIABLE DOSE
     Route: 042
     Dates: start: 20090602, end: 20090616
  4. TRASTUZUMAB [Concomitant]
     Indication: BREAST CANCER
     Dosage: 2MGK VARIABLE DOSE
     Route: 042
     Dates: start: 20090623
  5. ABRAXANE [Concomitant]
     Indication: BREAST CANCER
  6. TAXOTERE [Concomitant]
     Indication: BREAST CANCER
  7. CELEXA [Concomitant]
     Dates: start: 20051209

REACTIONS (1)
  - Cardiac failure congestive [Recovered/Resolved]
